FAERS Safety Report 5743655-1 (Version None)
Quarter: 2008Q2

REPORT INFORMATION
  Report Type: 
  Country: None (occurrence: None)
  Receive Date: 20080516
  Receipt Date: 20080508
  Transmission Date: 20081010
  Serious: Yes (Hospitalization)
  Sender: FDA-Public Use
  Company Number: 2008BI007444

PATIENT
  Age: 32 Year
  Sex: Female

DRUGS (3)
  1. TYSABRI [Suspect]
     Indication: MULTIPLE SCLEROSIS
     Dosage: 300 MG; QM; IV
     Route: 042
     Dates: start: 20061129
  2. AVONEX [Concomitant]
  3. DILANTIN [Concomitant]

REACTIONS (4)
  - ANTICONVULSANT DRUG LEVEL BELOW THERAPEUTIC [None]
  - CATHETER RELATED INFECTION [None]
  - CONVULSION [None]
  - URINARY TRACT INFECTION [None]
